FAERS Safety Report 5649291-X (Version None)
Quarter: 2008Q1

REPORT INFORMATION
  Report Type: 
  Country: None (occurrence: None)
  Receive Date: 20080303
  Receipt Date: 20080303
  Transmission Date: 20080703
  Serious: Yes (Hospitalization)
  Sender: FDA-Public Use
  Company Number: None

PATIENT
  Age: 37 Year
  Sex: Male
  Weight: 79.3795 kg

DRUGS (1)
  1. EFFEXOR XR [Suspect]
     Indication: DEPRESSION
     Dosage: 150MG DAILY  PO
     Route: 048

REACTIONS (8)
  - ALCOHOL USE [None]
  - BLOOD PRESSURE INCREASED [None]
  - BODY TEMPERATURE INCREASED [None]
  - DIARRHOEA [None]
  - GASTROINTESTINAL DISORDER [None]
  - NAUSEA [None]
  - PANCREATITIS ACUTE [None]
  - VOMITING [None]
